FAERS Safety Report 5168867-X (Version None)
Quarter: 2006Q4

REPORT INFORMATION
  Report Type: 
  Country: None (occurrence: None)
  Receive Date: 20061211
  Receipt Date: 20061130
  Transmission Date: 20070319
  Serious: Yes (Other)
  Sender: FDA-Public Use
  Company Number: PHHO2006BR20481

PATIENT
  Age: 79 Year
  Sex: Female
  Weight: 33 kg

DRUGS (3)
  1. ZELMAC / HTF 919A [Suspect]
     Indication: CONSTIPATION
     Dosage: 6 MG, QD
     Route: 048
     Dates: start: 20060601
  2. HUMECTOL [Concomitant]
  3. BROMOPRIDE [Concomitant]
     Indication: ULCER

REACTIONS (5)
  - ABDOMINAL PAIN UPPER [None]
  - BLOOD PRESSURE DECREASED [None]
  - DRUG INEFFECTIVE [None]
  - GASTROINTESTINAL PAIN [None]
  - VOMITING [None]
